FAERS Safety Report 6762424-7 (Version None)
Quarter: 2010Q2

REPORT INFORMATION
  Report Type: 
  Country: None (occurrence: None)
  Receive Date: 20100609
  Receipt Date: 20100601
  Transmission Date: 20101027
  Serious: Yes (Hospitalization)
  Sender: FDA-Public Use
  Company Number: US-ROCHE-707757

PATIENT
  Sex: Female

DRUGS (4)
  1. BEVACIZUMAB [Suspect]
     Indication: OVARIAN EPITHELIAL CANCER
     Dosage: OVER 30-90 MINUTES ON DAY ONE BEGINING WITH CYCLE 2.PHASE A(CYCLE:1-6), PHASE:B(CYCLE:7-22)
     Route: 042
     Dates: start: 20100302
  2. PACLITAXEL [Suspect]
     Indication: OVARIAN EPITHELIAL CANCER
     Dosage: OVER 3 HOUR ON DAY 1 OF 3 WEEKS CYCLE (FOR CYCLE 1-6)
     Route: 042
     Dates: start: 20100302
  3. PACLITAXEL [Suspect]
     Dosage: ROUTE: INTRAPERITONEAL.  ON DAY 8 OF 3 WEEK CYCLE FORM CYCLE 1-6.
     Route: 042
  4. CISPLATIN [Suspect]
     Indication: OVARIAN EPITHELIAL CANCER
     Dosage: DAY 2 OF EVERY 3 WEEK CYCLE FORM CYCLE 1-6.
     Route: 033
     Dates: start: 20100302

REACTIONS (2)
  - GLOMERULAR FILTRATION RATE DECREASED [None]
  - INFECTION [None]
